FAERS Safety Report 16835311 (Version 4)
Quarter: 2024Q4

REPORT INFORMATION
  Report Type: Report from Study
  Country: CO (occurrence: CO)
  Receive Date: 20190920
  Receipt Date: 20241129
  Transmission Date: 20250115
  Serious: Yes (Other)
  Sender: AMGEN
  Company Number: CO-AMGEN-COLSL2019152667

PATIENT
  Age: 77 Year
  Sex: Female

DRUGS (3)
  1. NPLATE [Suspect]
     Active Substance: ROMIPLOSTIM
     Indication: Immune thrombocytopenia
     Dosage: 250 MICROGRAM, QWK
     Route: 058
     Dates: start: 20150521
  2. NPLATE [Suspect]
     Active Substance: ROMIPLOSTIM
     Dosage: 208 MICROGRAM, QWK
     Route: 058
  3. NPLATE [Suspect]
     Active Substance: ROMIPLOSTIM
     Dosage: 196 MICROGRAM, OTHER
     Route: 058

REACTIONS (2)
  - Thrombocytosis [Recovered/Resolved]
  - Abscess limb [Not Recovered/Not Resolved]
